FAERS Safety Report 10436236 (Version 1)
Quarter: 2014Q3

REPORT INFORMATION
  Report Type: Spontaneous
  Country: DK (occurrence: DK)
  Receive Date: 20140908
  Receipt Date: 20140908
  Transmission Date: 20150326
  Serious: Yes (Other)
  Sender: FDA-Public Use
  Company Number: DK-NOVOPROD-420948

PATIENT
  Sex: Female

DRUGS (10)
  1. DICLON                             /00372302/ [Suspect]
     Active Substance: DICLOFENAC SODIUM
     Indication: PRODUCT USED FOR UNKNOWN INDICATION
  2. PONDOCILLIN                        /00272501/ [Concomitant]
     Indication: ABSCESS
     Dates: start: 2014
  3. ESTROFEM [Suspect]
     Active Substance: ESTRADIOL CYPIONATE
     Indication: PRODUCT USED FOR UNKNOWN INDICATION
     Dosage: 1 MG 3 X WEEK
     Dates: start: 201403
  4. BRUFEN                             /00109201/ [Suspect]
     Active Substance: IBUPROFEN
     Indication: PRODUCT USED FOR UNKNOWN INDICATION
  5. DICILLIN                           /00063302/ [Concomitant]
     Active Substance: DICLOXACILLIN SODIUM
     Indication: ABSCESS
     Dates: start: 201405
  6. NAPROXEN                           /00256202/ [Suspect]
     Active Substance: NAPROXEN SODIUM
     Indication: PRODUCT USED FOR UNKNOWN INDICATION
  7. METRONIDAZOL                       /00012501/ [Suspect]
     Active Substance: METRONIDAZOLE
     Indication: ABSCESS
     Dates: start: 2014
  8. AMOXICILLIN TRIHYDRATE W/CLAVULANIC ACID [Suspect]
     Active Substance: AMOXICILLIN\CLAVULANIC ACID
     Indication: ABSCESS
     Dates: start: 2014
  9. ARTHROTEC [Suspect]
     Active Substance: DICLOFENAC SODIUM\MISOPROSTOL
     Indication: PRODUCT USED FOR UNKNOWN INDICATION
  10. FLUCONAZOL KRKA [Concomitant]
     Indication: ORAL CANDIDIASIS
     Dates: start: 201405

REACTIONS (4)
  - Hepatic pain [Unknown]
  - Drug-induced liver injury [Not Recovered/Not Resolved]
  - Alanine aminotransferase increased [Unknown]
  - Liver disorder [Not Recovered/Not Resolved]

NARRATIVE: CASE EVENT DATE: 2014
